FAERS Safety Report 6396903-1 (Version None)
Quarter: 2009Q4

REPORT INFORMATION
  Report Type: 
  Country: None (occurrence: None)
  Receive Date: 20091012
  Receipt Date: 20090605
  Transmission Date: 20100525
  Serious: No
  Sender: FDA-Public Use
  Company Number: US-ASTRAZENECA-2009UW14661

PATIENT
  Age: 9541 Day
  Sex: Male
  Weight: 73 kg

DRUGS (2)
  1. SYMBICORT [Suspect]
     Indication: BRONCHITIS
     Dosage: 160/4.5, 2 PUFFS
     Route: 055
     Dates: start: 20090602
  2. ALBUTEROL [Concomitant]

REACTIONS (2)
  - COUGH [None]
  - RESPIRATORY DISORDER [None]
